FAERS Safety Report 20783085 (Version 2)
Quarter: 2022Q2

REPORT INFORMATION
  Report Type: Spontaneous
  Country: US (occurrence: US)
  Receive Date: 20220504
  Receipt Date: 20220509
  Transmission Date: 20220720
  Serious: Yes (Other)
  Sender: FDA-Public Use
  Company Number: US-PFIZER INC-202200627336

PATIENT
  Age: 57 Year
  Sex: Male

DRUGS (8)
  1. OXALIPLATIN [Suspect]
     Active Substance: OXALIPLATIN
     Dosage: 85 MG/M2, CYCLIC
  2. OXALIPLATIN [Suspect]
     Active Substance: OXALIPLATIN
     Dosage: 75 MG/M2, CYCLIC
  3. GABAPENTIN [Suspect]
     Active Substance: GABAPENTIN
     Dosage: 300 MG
  4. OXYCODONE [Suspect]
     Active Substance: OXYCODONE
     Dosage: 5 MG
  5. CAPECITABINE [Suspect]
     Active Substance: CAPECITABINE
     Dosage: 825 MG/M2, 2X/DAY
  6. LEUCOVORIN [Suspect]
     Active Substance: LEUCOVORIN
     Dosage: UNK
  7. FLUOROURACIL [Suspect]
     Active Substance: FLUOROURACIL
     Dosage: UNK
  8. DULOXETINE [Suspect]
     Active Substance: DULOXETINE
     Dosage: 30 MG, 2X/DAY

REACTIONS (2)
  - Myopathy [Recovered/Resolved]
  - Peripheral sensorimotor neuropathy [Recovered/Resolved]
